FAERS Safety Report 8824868 (Version 4)
Quarter: 2012Q4

REPORT INFORMATION
  Report Type: 
  Country: US (occurrence: US)
  Receive Date: 20121004
  Receipt Date: 20121206
  Transmission Date: 20130627
  Serious: Yes (Hospitalization)
  Sender: FDA-Public Use
  Company Number: US-VERTEX PHARMACEUTICAL INC.-2012-021486

PATIENT
  Sex: Female
  Weight: 74 kg

DRUGS (4)
  1. VX-950 (TELAPREVIR) [Suspect]
     Indication: HEPATITIS C
     Dosage: 750 mg, tid
     Route: 048
     Dates: start: 201209, end: 201211
  2. PEGASYS [Suspect]
     Indication: HEPATITIS C
     Dosage: 180 ?g,weekly
     Route: 058
     Dates: start: 201209, end: 201211
  3. RIBAVIRIN [Suspect]
     Indication: HEPATITIS C
     Dosage: 1000 mg, qd
     Route: 048
     Dates: start: 201209
  4. RIBAVIRIN [Suspect]
     Dosage: 400 mg, bid
     Route: 048
     Dates: end: 201211

REACTIONS (7)
  - Rash generalised [Unknown]
  - Anaemia [Unknown]
  - Influenza like illness [Recovered/Resolved]
  - Epistaxis [Unknown]
  - Nasal dryness [Unknown]
  - Fatigue [Unknown]
  - Pruritus [Unknown]
